FAERS Safety Report 7442267-1 (Version None)
Quarter: 2011Q2

REPORT INFORMATION
  Report Type: 
  Country: None (occurrence: None)
  Receive Date: 20110428
  Receipt Date: 20110420
  Transmission Date: 20111010
  Serious: Yes (Hospitalization, Other)
  Sender: FDA-Public Use
  Company Number: US-AMGEN-USASP2011021251

PATIENT
  Age: 59 Year
  Sex: Female

DRUGS (8)
  1. OMEPRAZOLE [Concomitant]
  2. ENBREL [Suspect]
     Indication: RHEUMATOID ARTHRITIS
     Dosage: 50 MG, QWK
     Dates: start: 20100401, end: 20110101
  3. LEVOXYL [Concomitant]
  4. AMBIEN [Concomitant]
  5. NIFEDIPINE [Concomitant]
  6. ARTHROTEC                          /00372302/ [Concomitant]
     Dates: start: 20101201
  7. PREDNISONE [Concomitant]
  8. TRAMADOL [Concomitant]
     Dates: start: 20110101

REACTIONS (2)
  - ATRIOVENTRICULAR BLOCK [None]
  - PNEUMONIA [None]
